FAERS Safety Report 10451307 (Version 2)
Quarter: 2015Q1

REPORT INFORMATION
  Report Type: Spontaneous
  Country: JP (occurrence: JP)
  Receive Date: 20140912
  Receipt Date: 20150223
  Transmission Date: 20150720
  Serious: Yes (Other)
  Sender: FDA-Public Use
  Company Number: JP-009507513-1409JPN006056

PATIENT
  Age: 59 Year
  Sex: Male

DRUGS (3)
  1. [THERAPY UNSPECIFIED] [Suspect]
     Active Substance: UNSPECIFIED INGREDIENT
  2. REBETOL [Suspect]
     Active Substance: RIBAVIRIN
     Dosage: UNKNOWN
     Route: 048
     Dates: start: 201208, end: 201210
  3. PEGINTRON [Suspect]
     Active Substance: PEGINTERFERON ALFA-2B
     Dosage: UNKNOWN
     Route: 058
     Dates: start: 201208, end: 201210

REACTIONS (2)
  - Erythema multiforme [Unknown]
  - Infection [Unknown]
